FAERS Safety Report 8243939-1 (Version None)
Quarter: 2012Q1

REPORT INFORMATION
  Report Type: 
  Country: None (occurrence: None)
  Receive Date: 20120329
  Receipt Date: 20110810
  Transmission Date: 20120608
  Serious: No
  Sender: FDA-Public Use
  Company Number: US-MYLANLABS-2011S1016888

PATIENT
  Age: 50 Year
  Sex: Female

DRUGS (1)
  1. ESTRADIOL [Suspect]
     Indication: HORMONE REPLACEMENT THERAPY
     Dosage: CHANGED QWK
     Route: 062
     Dates: start: 20110501

REACTIONS (7)
  - OEDEMA PERIPHERAL [None]
  - LIBIDO INCREASED [None]
  - SWELLING FACE [None]
  - OROPHARYNGEAL PAIN [None]
  - VULVOVAGINAL PAIN [None]
  - RASH [None]
  - VULVOVAGINAL DISCOMFORT [None]
